FAERS Safety Report 4639826-8 (Version None)
Quarter: 2005Q2

REPORT INFORMATION
  Report Type: 
  Country: None (occurrence: None)
  Receive Date: 20050415
  Receipt Date: 20050408
  Transmission Date: 20051028
  Serious: Yes (Hospitalization)
  Sender: FDA-Public Use
  Company Number: 05P-163-0292987-00

PATIENT
  Age: 57 Year
  Sex: Female

DRUGS (2)
  1. CYLERT [Suspect]
  2. INTERFERON ALFA [Suspect]

REACTIONS (1)
  - HEPATITIS TOXIC [None]
